FAERS Safety Report 8992920 (Version 3)
Quarter: 2013Q4

REPORT INFORMATION
  Report Type: Report from Study
  Country: US (occurrence: US)
  Receive Date: 20130102
  Receipt Date: 20131022
  Transmission Date: 20140711
  Serious: Yes (Hospitalization)
  Sender: FDA-Public Use
  Company Number: US-JNJFOC-20121212058

PATIENT
  Age: 13 Year
  Sex: Female
  Weight: 39.9 kg

DRUGS (4)
  1. REMICADE [Suspect]
     Indication: COLITIS ULCERATIVE
     Route: 042
     Dates: start: 20120305, end: 20120417
  2. STEROIDS NOS [Concomitant]
     Route: 065
  3. 5-ASA [Concomitant]
     Indication: COLITIS ULCERATIVE
     Route: 048
  4. PREDNISONE [Concomitant]
     Indication: COLITIS ULCERATIVE
     Route: 065

REACTIONS (1)
  - Colitis ulcerative [Recovered/Resolved]
